FAERS Safety Report 8802615 (Version 1)
Quarter: 2012Q4

REPORT INFORMATION
  Report Type: 
  Country: US (occurrence: US)
  Receive Date: 20120921
  Receipt Date: 20120921
  Transmission Date: 20130627
  Serious: Yes (Other)
  Sender: FDA-Public Use
  Company Number: US-ELI_LILLY_AND_COMPANY-US201209003896

PATIENT
  Age: 67 Year
  Sex: Female

DRUGS (2)
  1. BYETTA [Suspect]
     Dosage: 10 ug, UNK
     Route: 058
  2. BYETTA [Suspect]
     Dosage: 5 ug, UNK
     Route: 058

REACTIONS (4)
  - Knee operation [Unknown]
  - Impaired gastric emptying [Recovered/Resolved]
  - Weight decreased [Unknown]
  - Vomiting [Recovered/Resolved]
